FAERS Safety Report 8496466-0 (Version None)
Quarter: 2012Q2

REPORT INFORMATION
  Report Type: 
  Country: None (occurrence: None)
  Receive Date: 20120405
  Receipt Date: 20100114
  Transmission Date: 20120825
  Serious: Yes (Hospitalization)
  Sender: FDA-Public Use
  Company Number: PHHY2010US02190

PATIENT
  Age: 83 Year
  Sex: Female
  Weight: 130 kg

DRUGS (1)
  1. RECLAST [Suspect]
     Dosage: 5MG, IV INFUSION
     Route: 042
     Dates: start: 20091015

REACTIONS (1)
  - BLOOD CREATININE INCREASED [None]
